FAERS Safety Report 20518775 (Version 1)
Quarter: 2022Q1

REPORT INFORMATION
  Report Type: Spontaneous
  Country: US (occurrence: None)
  Receive Date: 20220224
  Receipt Date: 20220224
  Transmission Date: 20220423
  Serious: Yes (Life-Threatening, Hospitalization, Other)
  Sender: FDA-Public Use
  Company Number: None

PATIENT
  Age: 57 Year
  Sex: Male
  Weight: 103.95 kg

DRUGS (11)
  1. SUGAMMADEX [Suspect]
     Active Substance: SUGAMMADEX
     Indication: Neuromuscular blockade reversal
     Dosage: OTHER FREQUENCY : ONCE;?
     Route: 040
     Dates: start: 20220218, end: 20220218
  2. CEFAZOLIN [Concomitant]
     Active Substance: CEFAZOLIN
  3. PROPOFOL [Concomitant]
     Active Substance: PROPOFOL
  4. LIDOCAINE [Concomitant]
     Active Substance: LIDOCAINE
  5. ACETAMINOPHEN [Concomitant]
     Active Substance: ACETAMINOPHEN
  6. KETOROLAC [Concomitant]
     Active Substance: KETOROLAC TROMETHAMINE
  7. ROCURONIUM [Concomitant]
     Active Substance: ROCURONIUM BROMIDE
  8. FENTANYL [Concomitant]
     Active Substance: FENTANYL
  9. ALBUTEROL [Concomitant]
     Active Substance: ALBUTEROL
  10. DEXMEDETOMIDINE [Concomitant]
     Active Substance: DEXMEDETOMIDINE
  11. KETAMINE [Concomitant]
     Active Substance: KETAMINE

REACTIONS (3)
  - Bradycardia [None]
  - Cardiac arrest [None]
  - Anaphylactic reaction [None]

NARRATIVE: CASE EVENT DATE: 20220218
